FAERS Safety Report 7735563-1 (Version None)
Quarter: 2011Q3

REPORT INFORMATION
  Report Type: 
  Country: None (occurrence: None)
  Receive Date: 20110907
  Receipt Date: 20110823
  Transmission Date: 20111222
  Serious: Yes (Hospitalization)
  Sender: FDA-Public Use
  Company Number: US-WATSON-2011-14148

PATIENT
  Age: 12 Year
  Sex: Male

DRUGS (5)
  1. LEVETIRACETAM [Suspect]
     Dosage: 750 MG, BID (40 MG/KG/DAY)
  2. LEVETIRACETAM [Suspect]
     Dosage: 400 MG, BID
  3. LEVETIRACETAM [Suspect]
     Indication: GRAND MAL CONVULSION
     Dosage: 1700 MG, DAILY
  4. LEVETIRACETAM [Suspect]
     Dosage: 1400 MG, DAILY
  5. VALPROATE SODIUM [Suspect]
     Indication: COMPLEX PARTIAL SEIZURES
     Dosage: UNK MG, BID

REACTIONS (2)
  - FATIGUE [None]
  - MYOCLONUS [None]
